FAERS Safety Report 8059733-0 (Version None)
Quarter: 2012Q1

REPORT INFORMATION
  Report Type: 
  Country: None (occurrence: None)
  Receive Date: 20120120
  Receipt Date: 20120117
  Transmission Date: 20120608
  Serious: Yes (Death)
  Sender: FDA-Public Use
  Company Number: PHHY2011US67863

PATIENT
  Sex: Female
  Weight: 83 kg

DRUGS (10)
  1. ASPIRIN [Concomitant]
     Dosage: 1 DF, DAILY
     Route: 048
  2. ACETAMINOPHEN [Concomitant]
     Dosage: 1 DF, PRN
     Route: 048
  3. ZESTRIL [Concomitant]
     Dosage: 5 MG, DAILY
     Route: 048
  4. METFORMIN HCL [Concomitant]
     Dosage: 1 DF, BID
     Route: 048
     Dates: start: 20100310
  5. PLAVIX [Concomitant]
     Dosage: 75 MG, DAILY
     Route: 048
     Dates: start: 20110228
  6. GABAPENTIN [Concomitant]
     Dosage: 300 MG, TID
     Route: 048
  7. MEVACOR [Concomitant]
     Dosage: 20 MG, DAILY
     Route: 048
  8. GLEEVEC [Suspect]
     Dosage: 600 MG, DAILY
     Route: 048
     Dates: start: 20110705
  9. ARANESP [Concomitant]
     Route: 065
  10. GLEEVEC [Suspect]
     Indication: CHRONIC MYELOID LEUKAEMIA
     Dosage: 400 MG, QD
     Route: 048
     Dates: start: 20090922

REACTIONS (5)
  - ANAEMIA [None]
  - BLOOD LACTATE DEHYDROGENASE INCREASED [None]
  - BLOOD GLUCOSE INCREASED [None]
  - CARDIAC DISORDER [None]
  - HAEMOGLOBIN DECREASED [None]
